FAERS Safety Report 10361750 (Version 1)
Quarter: 2014Q3

REPORT INFORMATION
  Report Type: Report from Study
  Country: US (occurrence: US)
  Receive Date: 20140805
  Receipt Date: 20140805
  Transmission Date: 20150326
  Serious: Yes (Other)
  Sender: FDA-Public Use
  Company Number: US-BRISTOL-MYERS SQUIBB COMPANY-21237045

PATIENT
  Age: 55 Year
  Sex: Female
  Weight: 119.72 kg

DRUGS (1)
  1. ORENCIA [Suspect]
     Active Substance: ABATACEPT
     Indication: RHEUMATOID ARTHRITIS
     Dosage: LAST INJECTION WAS ON 20JUL2014?NO OF COURSE=4
     Route: 058
     Dates: start: 201406, end: 20140720

REACTIONS (1)
  - Swelling face [Unknown]
